FAERS Safety Report 16363044 (Version 14)
Quarter: 2021Q4

REPORT INFORMATION
  Report Type: Spontaneous
  Country: US (occurrence: US)
  Receive Date: 20190528
  Receipt Date: 20211103
  Transmission Date: 20220303
  Serious: Yes (Life-Threatening, Hospitalization, Other)
  Sender: FDA-Public Use
  Company Number: US-PFIZER INC-2019226497

PATIENT
  Age: 44 Year
  Sex: Female
  Weight: 58.957 kg

DRUGS (12)
  1. LORBRENA [Suspect]
     Active Substance: LORLATINIB
     Indication: Non-small cell lung cancer
     Dosage: 75 MG, 1X/DAY
     Route: 048
     Dates: start: 201903, end: 20210521
  2. CHOLECALCIFEROL [Concomitant]
     Active Substance: CHOLECALCIFEROL
     Dosage: 900 IU
     Route: 048
     Dates: end: 20210518
  3. DEXAMETHASONE [Concomitant]
     Active Substance: DEXAMETHASONE
     Dosage: 4 MG, 2X/DAY
     Route: 048
     Dates: end: 20210518
  4. DOCUSATE SODIUM [Concomitant]
     Active Substance: DOCUSATE SODIUM
     Indication: Constipation
     Dosage: 400 MG, 3X/DAY
     Dates: end: 20210518
  5. FLORA Q [LACTOBACILLUS ACIDOPHILUS] [Concomitant]
     Dosage: UNK
     Route: 048
     Dates: end: 20210518
  6. FLUZONE QUADRIVALENT NOS [Concomitant]
     Active Substance: INFLUENZA A VIRUS A/CALIFORNIA/7/2009 X-179A (H1N1) ANTIGEN (FORMALDEHYDE INACTIVATED)\INFLUENZA A V
     Dosage: 60 MG
     Route: 030
     Dates: end: 20210518
  7. FOLIC ACID [Concomitant]
     Active Substance: FOLIC ACID
     Dosage: 1 MG, 1X/DAY
     Route: 048
  8. MONTELUKAST [Concomitant]
     Active Substance: MONTELUKAST SODIUM
     Dosage: 10 MG
     Route: 048
     Dates: end: 20210518
  9. ONDANSETRON [Concomitant]
     Active Substance: ONDANSETRON
     Indication: Nausea
     Dosage: 8 MG, AS NEEDED
     Route: 048
     Dates: end: 20210518
  10. PREVNAR 13 [Concomitant]
     Active Substance: PNEUMOCOCCAL 13-VALENT CONJUGATE VACCINE
     Dosage: 0.5 ML
     Route: 030
     Dates: end: 20210518
  11. PROCHLORPERAZINE [Concomitant]
     Active Substance: PROCHLORPERAZINE
     Indication: Nausea
     Dosage: 10 MG, AS NEEDED
     Route: 048
     Dates: end: 20210518
  12. SYMBICORT [Concomitant]
     Active Substance: BUDESONIDE\FORMOTEROL FUMARATE DIHYDRATE
     Indication: Dyspnoea
     Dosage: UNK, 2X/DAY
     Dates: end: 20210525

REACTIONS (13)
  - Chest pain [Unknown]
  - Pleural effusion [Unknown]
  - Pericardial effusion [Recovered/Resolved]
  - Pneumonia [Recovered/Resolved]
  - Infection susceptibility increased [Unknown]
  - Neoplasm progression [Not Recovered/Not Resolved]
  - Lipids increased [Unknown]
  - Arthralgia [Unknown]
  - Cognitive disorder [Unknown]
  - Weight increased [Unknown]
  - Blood cholesterol increased [Unknown]
  - Memory impairment [Unknown]
  - Upper respiratory tract infection [Unknown]

NARRATIVE: CASE EVENT DATE: 20210101
